FAERS Safety Report 12136758 (Version 1)
Quarter: 2016Q1

REPORT INFORMATION
  Report Type: Spontaneous
  Country: US (occurrence: None)
  Receive Date: 20160301
  Receipt Date: 20160301
  Transmission Date: 20160526
  Serious: Yes (Hospitalization)
  Sender: FDA-Public Use
  Company Number: None

PATIENT
  Age: 79 Year
  Sex: Male

DRUGS (7)
  1. VITAMIN D [Concomitant]
     Active Substance: CHOLECALCIFEROL
  2. KEPPRA [Concomitant]
     Active Substance: LEVETIRACETAM
  3. VOTRIENT [Suspect]
     Active Substance: PAZOPANIB HYDROCHLORIDE
     Indication: DRUG THERAPY
     Dosage: TAKE 4 TABLETS DAILY BY MOUTH
     Route: 048
     Dates: start: 20160209, end: 20160219
  4. AMLLODIPINE [Concomitant]
  5. TAMSULOSIN [Concomitant]
     Active Substance: TAMSULOSIN
  6. RENAL VITAMIN [Concomitant]
  7. SYNTHROID [Concomitant]
     Active Substance: LEVOTHYROXINE SODIUM

REACTIONS (5)
  - Hypophagia [None]
  - Malaise [None]
  - Pain [None]
  - Nausea [None]
  - Gastrointestinal perforation [None]

NARRATIVE: CASE EVENT DATE: 20160224
